FAERS Safety Report 9786839 (Version 1)
Quarter: 2013Q4

REPORT INFORMATION
  Report Type: Spontaneous
  Country: US (occurrence: US)
  Receive Date: 20131227
  Receipt Date: 20131227
  Transmission Date: 20140711
  Serious: No
  Sender: FDA-Public Use
  Company Number: US-TEVA-453446USA

PATIENT
  Age: 25 Year
  Sex: Female
  Weight: 102.15 kg

DRUGS (1)
  1. PLAN B ONE-STEP [Suspect]
     Indication: POST COITAL CONTRACEPTION
     Dosage: 1.5 MILLIGRAM DAILY;
     Route: 048
     Dates: start: 20131216, end: 20131216

REACTIONS (2)
  - Back pain [Not Recovered/Not Resolved]
  - Headache [Recovered/Resolved]
